FAERS Safety Report 4808641-4 (Version None)
Quarter: 2005Q4

REPORT INFORMATION
  Report Type: 
  Country: None (occurrence: None)
  Receive Date: 20051021
  Receipt Date: 20040524
  Transmission Date: 20060501
  Serious: No
  Sender: FDA-Public Use
  Company Number: AU_040507759

PATIENT
  Age: 26 Year
  Sex: Male

DRUGS (4)
  1. ZYPREXA [Suspect]
     Indication: SCHIZOPHRENIA
     Dosage: 15 MG DAY
     Route: 048
     Dates: start: 20040401
  2. CLONAZEPAM [Concomitant]
  3. LITHIUM [Concomitant]
  4. SEROQUEL [Concomitant]

REACTIONS (1)
  - NEUTROPENIA [None]
